FAERS Safety Report 4356875-8 (Version None)
Quarter: 2004Q2

REPORT INFORMATION
  Report Type: 
  Country: None (occurrence: None)
  Receive Date: 20040507
  Receipt Date: 20040426
  Transmission Date: 20050107
  Serious: Yes (Hospitalization, Other)
  Sender: FDA-Public Use
  Company Number: USA040465646

PATIENT
  Age: 75 Year
  Sex: Male

DRUGS (4)
  1. CIALIS [Suspect]
     Dosage: 20 MG
  2. CALCIUM CHANNEL BLOCKERS [Concomitant]
  3. THIAZIDE DIURETIC [Concomitant]
  4. ACE INHIBITOR [Concomitant]

REACTIONS (4)
  - ALCOHOL USE [None]
  - LOSS OF CONSCIOUSNESS [None]
  - LOWER LIMB FRACTURE [None]
  - ROAD TRAFFIC ACCIDENT [None]
